FAERS Safety Report 6307422-2 (Version None)
Quarter: 2009Q3

REPORT INFORMATION
  Report Type: 
  Country: None (occurrence: None)
  Receive Date: 20090813
  Receipt Date: 20090501
  Transmission Date: 20100115
  Serious: No
  Sender: FDA-Public Use
  Company Number: US-BRISTOL-MYERS SQUIBB COMPANY-14600035

PATIENT
  Age: 65 Year
  Sex: Female

DRUGS (1)
  1. IXEMPRA KIT [Suspect]
     Dosage: INITIATED ON 03JUL08,29JUL08,19AUG,9SEP,30SEP,21OCT,11NOV,27JAN09,17FEB,10MAR,31MAR09,21APR09.
     Route: 042
     Dates: start: 20090421, end: 20090421

REACTIONS (1)
  - EXTRAVASATION [None]
